FAERS Safety Report 5266254-7 (Version None)
Quarter: 2007Q1

REPORT INFORMATION
  Report Type: 
  Country: None (occurrence: None)
  Receive Date: 20070315
  Receipt Date: 20070315
  Transmission Date: 20070707
  Serious: Yes (Other)
  Sender: FDA-Public Use
  Company Number: DE-GLAXOSMITHKLINE-D0052544A

PATIENT
  Age: 55 Year
  Sex: Male

DRUGS (2)
  1. QUILONUM RETARD [Suspect]
     Indication: MENTAL DISORDER
     Dosage: 450MG UNKNOWN
     Route: 048
  2. AURORIX [Suspect]
     Route: 048

REACTIONS (3)
  - DYSPNOEA EXERTIONAL [None]
  - OEDEMA PERIPHERAL [None]
  - SINUS BRADYCARDIA [None]
